FAERS Safety Report 9099756 (Version 1)
Quarter: 2013Q1

REPORT INFORMATION
  Report Type: Spontaneous
  Country: DE (occurrence: DE)
  Receive Date: 20130214
  Receipt Date: 20130214
  Transmission Date: 20140127
  Serious: Yes (Hospitalization)
  Sender: FDA-Public Use
  Company Number: DE-ELI_LILLY_AND_COMPANY-DE201301005002

PATIENT
  Sex: Male
  Weight: 106 kg

DRUGS (3)
  1. EFIENT [Suspect]
     Indication: ACUTE MYOCARDIAL INFARCTION
     Dosage: 10 MG, QD
     Dates: start: 20121220, end: 20130116
  2. SIMVASTATIN [Concomitant]
     Indication: ACUTE MYOCARDIAL INFARCTION
     Dosage: 40 MG, QD
     Dates: start: 20121220
  3. RAMIPRIL [Concomitant]
     Indication: ACUTE MYOCARDIAL INFARCTION
     Dosage: 2.5 MG, QD
     Route: 048

REACTIONS (1)
  - Vertigo [Not Recovered/Not Resolved]
